FAERS Safety Report 4736766-0 (Version None)
Quarter: 2005Q3

REPORT INFORMATION
  Report Type: 
  Country: None (occurrence: None)
  Receive Date: 20050804
  Receipt Date: 20050712
  Transmission Date: 20060218
  Serious: Yes (Hospitalization, Other)
  Sender: FDA-Public Use
  Company Number: USA0507102881

PATIENT
  Age: 70 Year
  Sex: Female

DRUGS (14)
  1. CYMBALTA [Suspect]
     Indication: DEPRESSION
     Dosage: 30 MG DAY
     Dates: end: 20050709
  2. COREG [Concomitant]
  3. POTASSIUM  / 00031402/ (POTASSIUM CHLORIDE) [Concomitant]
  4. NORVASC [Concomitant]
  5. MULTIVITAMINS NOS (MULTIVITAMINS NOS) [Concomitant]
  6. OSCAL (CALCIUM CARBONATE) [Concomitant]
  7. ASPIRIN [Concomitant]
  8. PLAVIX [Concomitant]
  9. SYNTHROID [Concomitant]
  10. AVAPRO [Concomitant]
  11. DITROPAN   /SCH/(OXYBUTYNIN HYDROCHLORIDE) [Concomitant]
  12. ULTRACET [Concomitant]
  13. TROSPIUM CHLORIDE [Concomitant]
  14. GLUCOPHAGE (METFORMIN   /00082701/) [Concomitant]

REACTIONS (4)
  - ESCHERICHIA INFECTION [None]
  - INAPPROPRIATE ANTIDIURETIC HORMONE SECRETION [None]
  - PNEUMONIA KLEBSIELLA [None]
  - UROSEPSIS [None]
